FAERS Safety Report 19362175 (Version 2)
Quarter: 2021Q2

REPORT INFORMATION
  Report Type: Spontaneous
  Country: US (occurrence: US)
  Receive Date: 20210603
  Receipt Date: 20210614
  Transmission Date: 20210717
  Serious: Yes (Other)
  Sender: FDA-Public Use
  Company Number: US-JNJFOC-20210554924

PATIENT

DRUGS (1)
  1. VISINE UNSPECIFIED [Suspect]
     Active Substance: TETRAHYDROZOLINE HYDROCHLORIDE
     Indication: PRODUCT USED FOR UNKNOWN INDICATION
     Route: 065

REACTIONS (6)
  - Wrong technique in product usage process [Unknown]
  - Dysgeusia [Unknown]
  - Poisoning deliberate [Unknown]
  - Internal haemorrhage [Unknown]
  - Muscle spasms [Unknown]
  - Anal incontinence [Unknown]
